FAERS Safety Report 24439858 (Version 2)
Quarter: 2024Q4

REPORT INFORMATION
  Report Type: Report from Study
  Country: CA (occurrence: CA)
  Receive Date: 20241015
  Receipt Date: 20241024
  Transmission Date: 20250114
  Serious: Yes (Other)
  Sender: ALEXION PHARMACEUTICALS
  Company Number: CA-AstraZeneca-CH-00723267A

PATIENT

DRUGS (9)
  1. TEZEPELUMAB [Suspect]
     Active Substance: TEZEPELUMAB
     Indication: Asthma
     Dosage: 210 MILLIGRAM
  2. TEZEPELUMAB [Suspect]
     Active Substance: TEZEPELUMAB
     Dosage: 210 MILLIGRAM
  3. TEZEPELUMAB [Suspect]
     Active Substance: TEZEPELUMAB
     Dosage: 210 MILLIGRAM
  4. TEZEPELUMAB [Suspect]
     Active Substance: TEZEPELUMAB
     Dosage: 210 MILLIGRAM
  5. GLYCOPYRROLATE\INDACATEROL\MOMETASONE FUROATE [Concomitant]
     Active Substance: GLYCOPYRROLATE\INDACATEROL\MOMETASONE FUROATE
     Dosage: 150/50/160MCG-1 PUFF 1X DAILY
  6. GLYCOPYRROLATE\INDACATEROL\MOMETASONE FUROATE [Concomitant]
     Active Substance: GLYCOPYRROLATE\INDACATEROL\MOMETASONE FUROATE
     Dosage: 150/50/160MCG-1 PUFF 1X DAILY
     Route: 065
  7. SINGULAIR [Concomitant]
     Active Substance: MONTELUKAST SODIUM
     Dosage: 10 MILLIGRAM, QD
  8. VENTOLIN [Concomitant]
     Active Substance: ALBUTEROL SULFATE
     Dosage: UNK, PRN
  9. VENTOLIN [Concomitant]
     Active Substance: ALBUTEROL SULFATE
     Dosage: UNK, PRN
     Route: 065

REACTIONS (2)
  - Cardiac failure congestive [Unknown]
  - Asthma [Unknown]
